FAERS Safety Report 8186507-2 (Version None)
Quarter: 2012Q1

REPORT INFORMATION
  Report Type: 
  Country: None (occurrence: None)
  Receive Date: 20120302
  Receipt Date: 20120302
  Transmission Date: 20120608
  Serious: No
  Sender: FDA-Public Use
  Company Number: None

PATIENT
  Sex: Female

DRUGS (1)
  1. LEVOXYL [Suspect]
     Dosage: 75 MCG 1 PO DAILY
     Route: 048
     Dates: start: 20100101, end: 20110101

REACTIONS (1)
  - DRUG PRESCRIBING ERROR [None]
